FAERS Safety Report 7443192-2 (Version None)
Quarter: 2011Q2

REPORT INFORMATION
  Report Type: 
  Country: None (occurrence: None)
  Receive Date: 20110428
  Receipt Date: 20101214
  Transmission Date: 20111010
  Serious: Yes (Disabling)
  Sender: FDA-Public Use
  Company Number: B0689424A

PATIENT
  Sex: Male
  Weight: 64 kg

DRUGS (19)
  1. BAKTAR [Concomitant]
     Route: 048
     Dates: start: 20100707, end: 20100815
  2. INTRAFAT [Concomitant]
     Route: 042
     Dates: start: 20100707, end: 20100815
  3. VICCLOX [Concomitant]
     Route: 042
     Dates: start: 20100720, end: 20100727
  4. ALLOPURINOL [Concomitant]
     Route: 048
     Dates: start: 20100707, end: 20100713
  5. UNKNOWN [Concomitant]
     Route: 048
     Dates: start: 20100707, end: 20100722
  6. FUNGUARD [Concomitant]
     Route: 042
     Dates: start: 20100707, end: 20100811
  7. VFEND [Concomitant]
     Route: 042
     Dates: start: 20100811, end: 20100815
  8. ARRANON [Suspect]
     Dosage: 1500MGM2 ALTERNATE DAYS
     Route: 042
     Dates: start: 20100804, end: 20100808
  9. VEPESID [Concomitant]
     Indication: NEOPLASM MALIGNANT
     Route: 042
     Dates: start: 20100328, end: 20100329
  10. ENDOXAN [Concomitant]
     Indication: NEOPLASM MALIGNANT
     Dates: start: 20100402, end: 20100403
  11. MAXIPIME [Concomitant]
     Route: 042
     Dates: start: 20100707, end: 20100708
  12. TAKEPRON [Concomitant]
     Route: 048
     Dates: start: 20100707, end: 20100815
  13. BROACT [Concomitant]
     Route: 042
     Dates: start: 20100712, end: 20100720
  14. DUROTEP [Concomitant]
     Route: 062
     Dates: start: 20100707, end: 20100816
  15. MOBIC [Concomitant]
     Route: 048
     Dates: start: 20100709, end: 20100722
  16. CARBENIN [Concomitant]
     Route: 042
     Dates: start: 20100720, end: 20100731
  17. VANCOMYCIN [Concomitant]
     Route: 042
     Dates: start: 20100720, end: 20100729
  18. ARRANON [Suspect]
     Indication: T-CELL TYPE ACUTE LEUKAEMIA
     Dosage: 1500MGM2 ALTERNATE DAYS
     Route: 042
     Dates: start: 20100707, end: 20100711
  19. PREDONINE [Concomitant]
     Indication: T-CELL TYPE ACUTE LEUKAEMIA
     Dates: start: 20100707, end: 20100710

REACTIONS (1)
  - MUSCULAR WEAKNESS [None]
